FAERS Safety Report 5759046-3 (Version None)
Quarter: 2008Q2

REPORT INFORMATION
  Report Type: 
  Country: None (occurrence: None)
  Receive Date: 20080602
  Receipt Date: 20080526
  Transmission Date: 20081010
  Serious: Yes (Life-Threatening)
  Sender: FDA-Public Use
  Company Number: 028-21880-08040619

PATIENT
  Age: 64 Year
  Sex: Female

DRUGS (1)
  1. REVLIMID [Suspect]
     Indication: MYELOFIBROSIS
     Dosage: 10 MG, ORAL
     Route: 048
     Dates: start: 20080219, end: 20080509

REACTIONS (3)
  - DIARRHOEA [None]
  - RASH PRURITIC [None]
  - THROMBOCYTOPENIA [None]
